FAERS Safety Report 6252372-3 (Version None)
Quarter: 2009Q3

REPORT INFORMATION
  Report Type: 
  Country: None (occurrence: None)
  Receive Date: 20090701
  Receipt Date: 20090630
  Transmission Date: 20100115
  Serious: Yes (Other)
  Sender: FDA-Public Use
  Company Number: US-PFIZER INC-2009215214

PATIENT
  Sex: Female
  Weight: 61.224 kg

DRUGS (5)
  1. SERTRALINE HCL [Suspect]
     Indication: ANXIETY
     Dosage: UNK
     Dates: start: 20000101
  2. SERTRALINE HCL [Suspect]
     Indication: DEPRESSION
  3. DIOVAN [Concomitant]
  4. CATAPRES [Concomitant]
  5. EVISTA [Concomitant]

REACTIONS (6)
  - ADVERSE REACTION [None]
  - DRUG INEFFECTIVE [None]
  - FEELING OF DESPAIR [None]
  - MENTAL DISORDER [None]
  - RASH [None]
  - SUICIDAL IDEATION [None]
